FAERS Safety Report 5242678-9 (Version None)
Quarter: 2007Q1

REPORT INFORMATION
  Report Type: 
  Country: None (occurrence: None)
  Receive Date: 20070214
  Receipt Date: 20070129
  Transmission Date: 20070707
  Serious: Yes (Death)
  Sender: FDA-Public Use
  Company Number: E2020-00792-SPO-JP

PATIENT
  Age: 75 Year
  Sex: Male
  Weight: 60 kg

DRUGS (4)
  1. ARICEPT [Suspect]
     Indication: DEMENTIA ALZHEIMER'S TYPE
     Dosage: 5 MG, 1 IN 1 D, ORAL
     Route: 048
     Dates: start: 20061110, end: 20061206
  2. JUVELA (TOCOPHEROL) [Concomitant]
  3. EXTRACT OF GINKGO BILOBA (GINKGO TREE LEAVES EXTRACT) [Concomitant]
  4. SINEMET [Concomitant]

REACTIONS (6)
  - BUNDLE BRANCH BLOCK RIGHT [None]
  - CARDIAC ARREST [None]
  - CARDIAC FAILURE ACUTE [None]
  - FALL [None]
  - RESPIRATORY ARREST [None]
  - VENTRICULAR HYPERTROPHY [None]
